FAERS Safety Report 8478519-6 (Version None)
Quarter: 2012Q2

REPORT INFORMATION
  Report Type: 
  Country: None (occurrence: None)
  Receive Date: 20120629
  Receipt Date: 20120622
  Transmission Date: 20120825
  Serious: Yes (Hospitalization)
  Sender: FDA-Public Use
  Company Number: JP-ELI_LILLY_AND_COMPANY-JP201206007953

PATIENT
  Sex: Female

DRUGS (3)
  1. ADCIRCA [Suspect]
     Indication: PULMONARY ARTERIAL HYPERTENSION
     Dosage: 40 MG, QD
     Route: 048
     Dates: start: 20110623
  2. LASIX [Concomitant]
     Dosage: UNK
     Route: 048
     Dates: start: 20120520
  3. VOLIBRIS [Concomitant]
     Dosage: UNK
     Route: 048
     Dates: start: 20110809

REACTIONS (2)
  - CHEST DISCOMFORT [None]
  - PALPITATIONS [None]
